FAERS Safety Report 19012596 (Version 1)
Quarter: 2021Q1

REPORT INFORMATION
  Report Type: Spontaneous
  Country: US (occurrence: US)
  Receive Date: 20210315
  Receipt Date: 20210315
  Transmission Date: 20210420
  Serious: No
  Sender: FDA-Public Use
  Company Number: US-009507513-2102USA007538

PATIENT
  Age: 27 Year
  Sex: Male

DRUGS (7)
  1. TYLENOL [Concomitant]
     Active Substance: ACETAMINOPHEN
  2. COUGH, COLD, AND FLU THERAPIES (UNSPECIFIED) [Concomitant]
     Active Substance: UNSPECIFIED INGREDIENT
  3. METOCLOPRAMIDE. [Concomitant]
     Active Substance: METOCLOPRAMIDE
  4. KEPPRA [Concomitant]
     Active Substance: LEVETIRACETAM
  5. BACTRIM [Concomitant]
     Active Substance: SULFAMETHOXAZOLE\TRIMETHOPRIM
  6. NOXAFIL [Suspect]
     Active Substance: POSACONAZOLE
     Indication: CRANIOCEREBRAL INJURY
     Dosage: 10 MILLILITER, Q12H
     Dates: start: 20200606
  7. GABAPENTIN. [Concomitant]
     Active Substance: GABAPENTIN

REACTIONS (2)
  - Drug ineffective for unapproved indication [Unknown]
  - Incorrect route of product administration [Unknown]

NARRATIVE: CASE EVENT DATE: 20200606
